FAERS Safety Report 4421979-8 (Version None)
Quarter: 2004Q3

REPORT INFORMATION
  Report Type: 
  Country: None (occurrence: None)
  Receive Date: 20040804
  Receipt Date: 20040712
  Transmission Date: 20050211
  Serious: Yes (Disabling, Other)
  Sender: FDA-Public Use
  Company Number: USA040772277

PATIENT
  Age: 59 Year
  Sex: Female
  Weight: 127 kg

DRUGS (3)
  1. HUMULIN-HUMAN INSULIN(RDNA):30% REGULAR, 70% NPH(H [Suspect]
     Dates: start: 19940101
  2. CAPTOPRIL(CAPTOPRIL BIOCHEMIE) [Concomitant]
  3. MAALOX [Concomitant]

REACTIONS (18)
  - ANOREXIA [None]
  - BLOOD GLUCOSE INCREASED [None]
  - CHAPPED LIPS [None]
  - CONSTIPATION [None]
  - CORONARY ARTERY STENOSIS [None]
  - DIZZINESS [None]
  - DRY MOUTH [None]
  - FAECAL VOLUME INCREASED [None]
  - HIATUS HERNIA [None]
  - IMPAIRED GASTRIC EMPTYING [None]
  - NAUSEA [None]
  - ORAL FUNGAL INFECTION [None]
  - PHARMACEUTICAL PRODUCT COMPLAINT [None]
  - RENAL IMPAIRMENT [None]
  - UMBILICAL HERNIA [None]
  - UTERINE LEIOMYOMA [None]
  - WEIGHT DECREASED [None]
  - WEIGHT INCREASED [None]
